FAERS Safety Report 11142837 (Version 1)
Quarter: 2015Q2

REPORT INFORMATION
  Report Type: Spontaneous
  Country: GB (occurrence: GB)
  Receive Date: 20150528
  Receipt Date: 20150528
  Transmission Date: 20150821
  Serious: Yes (Life-Threatening)
  Sender: FDA-Public Use
  Company Number: GB-CIPLA LTD.-2015GB04085

PATIENT

DRUGS (7)
  1. DOMPERIDONE [Concomitant]
     Active Substance: DOMPERIDONE
     Dosage: TOTAL DAILY DOSE REPORTED AS 10-20 MG PRN
     Route: 048
     Dates: start: 20100525, end: 20100713
  2. AVASTIN [Suspect]
     Active Substance: BEVACIZUMAB
     Indication: ADENOCARCINOMA GASTRIC
     Dosage: 562 MG, UNK, DATE OF LAST DOSE PRIOR TO SAE 06 JULY 2010
     Route: 042
  3. DEXAMETHASONE. [Concomitant]
     Active Substance: DEXAMETHASONE
     Dosage: TOTAL DAILY DOSE 8 MG/DAY, EACH CAPSULE
     Route: 048
     Dates: start: 20100525, end: 20100709
  4. LANSPRAZOLE [Concomitant]
     Dosage: UNK
     Route: 048
     Dates: start: 20100525, end: 20100727
  5. CISPLATIN. [Suspect]
     Active Substance: CISPLATIN
     Indication: ADENOCARCINOMA GASTRIC
     Dosage: 113 MG, UNK, DATE OF LAST DOSE PRIOR TO SAE 06 JULY 2010
     Route: 042
     Dates: start: 20100525
  6. EPIRUBICIN [Suspect]
     Active Substance: EPIRUBICIN
     Indication: ADENOCARCINOMA GASTRIC
     Dosage: 95 MG, UNK, DATE OF LAST DOSE PRIOR TO SAE 06 JULY 2010
     Route: 042
     Dates: start: 20150525
  7. XELODA [Suspect]
     Active Substance: CAPECITABINE
     Indication: ADENOCARCINOMA GASTRIC
     Dosage: 52 MG, UNK, DATE OF LAST DOSE PRIOR TO SAE 06 JULY 2010

REACTIONS (2)
  - Portal vein thrombosis [Not Recovered/Not Resolved]
  - Pulmonary embolism [Not Recovered/Not Resolved]

NARRATIVE: CASE EVENT DATE: 20100727
